FAERS Safety Report 7897057-2 (Version None)
Quarter: 2011Q4

REPORT INFORMATION
  Report Type: 
  Country: None (occurrence: None)
  Receive Date: 20111107
  Receipt Date: 20111024
  Transmission Date: 20120403
  Serious: Yes (Hospitalization, Disabling, Other)
  Sender: FDA-Public Use
  Company Number: US-ELI_LILLY_AND_COMPANY-US201008009012

PATIENT
  Sex: Female

DRUGS (9)
  1. TRAVATAN [Concomitant]
  2. DORZOLAMIDE [Concomitant]
  3. VITAMIN TAB [Concomitant]
  4. FORTEO [Suspect]
     Indication: OSTEOPOROSIS
     Dosage: 20 UG, DAILY (1/D)
     Route: 058
     Dates: start: 20100801
  5. LIPITOR [Concomitant]
  6. COUMADIN [Concomitant]
  7. FORTEO [Suspect]
     Dosage: 20 UG, QD
     Route: 058
  8. METOPROLOL TARTRATE [Concomitant]
  9. AMLODIPINE [Concomitant]

REACTIONS (4)
  - THROMBOSIS [None]
  - INFLUENZA [None]
  - INJECTION SITE HAEMATOMA [None]
  - LEG AMPUTATION [None]
